FAERS Safety Report 4355803-9 (Version None)
Quarter: 2004Q2

REPORT INFORMATION
  Report Type: 
  Country: None (occurrence: None)
  Receive Date: 20040511
  Receipt Date: 20031002
  Transmission Date: 20050107
  Serious: Yes (Disabling)
  Sender: FDA-Public Use
  Company Number: PHEH2003US09115

PATIENT
  Age: 53 Year
  Sex: Female
  Weight: 63 kg

DRUGS (1)
  1. LAMISIL [Suspect]
     Indication: NAIL TINEA
     Dosage: 250 MG, QD
     Route: 048
     Dates: start: 20030827, end: 20030922

REACTIONS (5)
  - ACUTE SINUSITIS [None]
  - AGEUSIA [None]
  - ANOREXIA [None]
  - DYSGEUSIA [None]
  - GLOSSITIS [None]
